FAERS Safety Report 9293394 (Version 2)
Quarter: 2013Q2

REPORT INFORMATION
  Report Type: Report from Study
  Country: US (occurrence: US)
  Receive Date: 20130515
  Receipt Date: 20130520
  Transmission Date: 20140414
  Serious: Yes (Hospitalization)
  Sender: FDA-Public Use
  Company Number: US-JNJFOC-20130504608

PATIENT
  Age: 18 Year
  Sex: Female
  Weight: 54.6 kg

DRUGS (8)
  1. REMICADE [Suspect]
     Indication: CROHN^S DISEASE
     Route: 042
     Dates: start: 20060703
  2. HUMIRA [Concomitant]
     Indication: PRODUCT USED FOR UNKNOWN INDICATION
     Route: 065
     Dates: start: 20070416, end: 20120406
  3. 5-ASA [Concomitant]
     Route: 048
  4. ANTIBIOTICS FOR IBD [Concomitant]
     Route: 065
  5. FERROUS GLUCONATE [Concomitant]
     Route: 065
  6. BACITRACIN W/POLYMYXIN [Concomitant]
     Route: 065
  7. CHOLECALCIFEROL [Concomitant]
     Route: 065
  8. OMEPRAZOLE [Concomitant]
     Route: 065

REACTIONS (1)
  - Pelvic inflammatory disease [Recovered/Resolved]
